FAERS Safety Report 5660128-5 (Version None)
Quarter: 2008Q1

REPORT INFORMATION
  Report Type: 
  Country: None (occurrence: None)
  Receive Date: 20080311
  Receipt Date: 20070920
  Transmission Date: 20080703
  Serious: No
  Sender: FDA-Public Use
  Company Number: US-BAYER-200713050BCC

PATIENT
  Sex: Female
  Weight: 96 kg

DRUGS (4)
  1. ALEVE [Suspect]
     Indication: ARTHRALGIA
     Dosage: TOTAL DAILY DOSE: 880 MG  UNIT DOSE: 220 MG
     Route: 048
  2. NEXIUM [Concomitant]
  3. CITALOPRAM [Concomitant]
  4. SIMVASTATIN [Concomitant]

REACTIONS (1)
  - ARTHRALGIA [None]
